FAERS Safety Report 8564987 (Version 2)
Quarter: 2014Q1

REPORT INFORMATION
  Report Type: Report from Study
  Country: US (occurrence: US)
  Receive Date: 20120516
  Receipt Date: 20140217
  Transmission Date: 20141002
  Serious: Yes (Hospitalization)
  Sender: FDA-Public Use
  Company Number: US-ALEXION-A201200281

PATIENT
  Age: 22 Year
  Sex: Female

DRUGS (4)
  1. SOLIRIS [Suspect]
     Indication: HAEMOLYTIC URAEMIC SYNDROME
     Dosage: UNK
     Route: 042
     Dates: start: 20120210
  2. LEXAPRO [Concomitant]
  3. SEROQUEL [Concomitant]
  4. HYDRALAZINE [Concomitant]
     Dosage: UNK
     Dates: start: 201111

REACTIONS (6)
  - Fluid overload [Recovered/Resolved]
  - Haemoglobin decreased [Recovered/Resolved]
  - Haematocrit decreased [Recovered/Resolved]
  - Dyspnoea exertional [Unknown]
  - Chest pain [Unknown]
  - Dyspnoea [Unknown]
